FAERS Safety Report 21933244 (Version 1)
Quarter: 2023Q1

REPORT INFORMATION
  Report Type: Report from Study
  Country: EG (occurrence: EG)
  Receive Date: 20230131
  Receipt Date: 20230131
  Transmission Date: 20230418
  Serious: Yes (Other)
  Sender: FDA-Public Use
  Company Number: EG-002147023-NVSC2023EG016162

PATIENT

DRUGS (6)
  1. RUXOLITINIB [Suspect]
     Active Substance: RUXOLITINIB
     Indication: Myelofibrosis
     Dosage: 40 MG, PER DAY (JAKAVI 5 MG, STARTED A YEAR AGO)
     Route: 048
  2. RUXOLITINIB [Suspect]
     Active Substance: RUXOLITINIB
     Dosage: 30 MG, PER DAY
     Route: 048
     Dates: start: 202209, end: 202210
  3. RUXOLITINIB [Suspect]
     Active Substance: RUXOLITINIB
     Dosage: 40 MG, PER DAY
     Route: 048
  4. DELTAVIT [Concomitant]
     Indication: Myelofibrosis
     Dosage: 1 DOSAGE FORM, QD
     Route: 065
     Dates: start: 202209
  5. FOLIC ACID [Concomitant]
     Active Substance: FOLIC ACID
     Indication: Myelofibrosis
     Dosage: 1 DOSAGE FORM, QD
     Route: 048
     Dates: start: 202209
  6. EPREX [Concomitant]
     Active Substance: ERYTHROPOIETIN
     Indication: Myelofibrosis
     Dosage: UNK (STRENGTH: 4000, SC INJECTION EVERY 3 DAYS)
     Route: 058
     Dates: start: 202209

REACTIONS (5)
  - Functional gastrointestinal disorder [Recovering/Resolving]
  - Hypertension [Recovering/Resolving]
  - Jaundice [Recovering/Resolving]
  - Product dose omission issue [Recovered/Resolved]
  - Splenomegaly [Recovering/Resolving]

NARRATIVE: CASE EVENT DATE: 20220901
